FAERS Safety Report 7536296-7 (Version None)
Quarter: 2011Q2

REPORT INFORMATION
  Report Type: 
  Country: None (occurrence: None)
  Receive Date: 20110608
  Receipt Date: 20110608
  Transmission Date: 20111010
  Serious: Yes (Other)
  Sender: FDA-Public Use
  Company Number: None

PATIENT
  Sex: Female
  Weight: 61.6892 kg

DRUGS (1)
  1. ATELVIA [Suspect]
     Indication: OSTEOPOROSIS
     Dates: start: 20110522

REACTIONS (5)
  - ABDOMINAL PAIN UPPER [None]
  - PYREXIA [None]
  - DIARRHOEA [None]
  - HEADACHE [None]
  - ARTHRALGIA [None]
